FAERS Safety Report 9566546 (Version 3)
Quarter: 2013Q4

REPORT INFORMATION
  Report Type: Report from Study
  Country: UY (occurrence: UY)
  Receive Date: 20130930
  Receipt Date: 20131212
  Transmission Date: 20140711
  Serious: Yes (Hospitalization, Other)
  Sender: FDA-Public Use
  Company Number: UY-ROCHE-1268428

PATIENT
  Age: 53 Year
  Sex: Female

DRUGS (12)
  1. HERCEPTIN [Suspect]
     Indication: BREAST CANCER
     Route: 042
     Dates: start: 20120113, end: 20130220
  2. HERCEPTIN [Suspect]
     Indication: METASTASES TO LUNG
     Route: 065
     Dates: start: 20130424, end: 20130717
  3. HERCEPTIN [Suspect]
     Indication: METASTASES TO BREAST
  4. XELODA [Suspect]
     Indication: BREAST CANCER
     Dosage: 1500MG AM AND 1500MG PM
     Route: 048
     Dates: start: 20130822
  5. XELODA [Suspect]
     Indication: METASTASES TO LUNG
  6. XELODA [Suspect]
     Indication: METASTASES TO BREAST
  7. CYCLOPHOSPHAMIDE [Concomitant]
     Dosage: PERIOD OF EXPOSURE MAY-JUL 2011 A TOTAL OF 4G
     Route: 065
  8. DOCETAXEL [Concomitant]
     Dosage: TOTAL DOSE 720 MG
     Route: 065
     Dates: start: 201201, end: 201206
  9. OMEPRAZOL [Concomitant]
     Route: 065
     Dates: start: 2010
  10. ONDANSETRON [Concomitant]
     Route: 065
     Dates: start: 2010
  11. DEXAMETHASONE [Concomitant]
     Route: 065
     Dates: start: 2010
  12. KETOPROFEN [Concomitant]
     Route: 065
     Dates: start: 2010

REACTIONS (7)
  - Oesophageal haemorrhage [Recovered/Resolved]
  - Ejection fraction decreased [Not Recovered/Not Resolved]
  - Cardiac failure [Not Recovered/Not Resolved]
  - Diarrhoea [Recovered/Resolved]
  - Vomiting [Recovered/Resolved]
  - Epistaxis [Recovered/Resolved]
  - Palmar-plantar erythrodysaesthesia syndrome [Unknown]
